FAERS Safety Report 5324568-6 (Version None)
Quarter: 2007Q2

REPORT INFORMATION
  Report Type: 
  Country: None (occurrence: None)
  Receive Date: 20070508
  Receipt Date: 20070424
  Transmission Date: 20071010
  Serious: Yes (Hospitalization, Other)
  Sender: FDA-Public Use
  Company Number: PAR_01527_2007

PATIENT
  Age: 46 Year
  Sex: Male

DRUGS (1)
  1. CLOZAPINE [Suspect]
     Indication: MANIA
     Dosage: (50 MG QD ORAL)
     Route: 048

REACTIONS (9)
  - ANGIOEDEMA [None]
  - BLISTER [None]
  - DRUG HYPERSENSITIVITY [None]
  - FLUSHING [None]
  - NEUTROPHILIA [None]
  - PERIORBITAL OEDEMA [None]
  - PYREXIA [None]
  - SKIN EXFOLIATION [None]
  - WHITE BLOOD CELL COUNT INCREASED [None]
